FAERS Safety Report 7528810-2 (Version None)
Quarter: 2011Q2

REPORT INFORMATION
  Report Type: 
  Country: None (occurrence: None)
  Receive Date: 20110607
  Receipt Date: 20100722
  Transmission Date: 20111010
  Serious: No
  Sender: FDA-Public Use
  Company Number: US-ASTRAZENECA-2010SE35191

PATIENT
  Sex: Male

DRUGS (3)
  1. PRILOSEC OTC [Suspect]
     Indication: OESOPHAGEAL DISORDER
     Route: 048
  2. PRILOSEC OTC [Suspect]
     Indication: GASTROOESOPHAGEAL REFLUX DISEASE
     Route: 048
  3. PRILOSEC OTC [Suspect]
     Indication: DYSPEPSIA
     Route: 048

REACTIONS (2)
  - DRUG INEFFECTIVE [None]
  - INCORRECT DRUG ADMINISTRATION DURATION [None]
